FAERS Safety Report 9348324 (Version 1)
Quarter: 2013Q2

REPORT INFORMATION
  Report Type: Spontaneous
  Country: US (occurrence: None)
  Receive Date: 20130613
  Receipt Date: 20130613
  Transmission Date: 20140414
  Serious: Yes (Death)
  Sender: FDA-Public Use
  Company Number: None

PATIENT
  Sex: Male

DRUGS (2)
  1. PREDNISONE [Suspect]
     Indication: PROSTATE CANCER
     Dosage: 5MG TAB. BID  PO
     Route: 048
     Dates: start: 20130430
  2. ZYTIGA 250 MG JANSSEN BIOTECH INC. [Suspect]
     Dosage: 1000MG QD  PO
     Route: 048
     Dates: start: 20130430

REACTIONS (1)
  - Death [None]
